FAERS Safety Report 4864243-5 (Version None)
Quarter: 2005Q4

REPORT INFORMATION
  Report Type: 
  Country: None (occurrence: None)
  Receive Date: 20051222
  Receipt Date: 20051216
  Transmission Date: 20060501
  Serious: Yes (Hospitalization)
  Sender: FDA-Public Use
  Company Number: 2005PK02433

PATIENT
  Age: 521 Month
  Sex: Female
  Weight: 69 kg

DRUGS (6)
  1. SEROQUEL [Suspect]
     Indication: PERSONALITY DISORDER
     Route: 048
     Dates: start: 20051114
  2. SEROQUEL [Suspect]
     Indication: DEPRESSION
     Route: 048
     Dates: start: 20051114
  3. CIPRAMIL [Concomitant]
     Indication: PERSONALITY DISORDER
     Route: 048
     Dates: start: 20040101
  4. CIPRAMIL [Concomitant]
     Indication: DEPRESSION
     Route: 048
     Dates: start: 20040101
  5. BRONCHO RETARD [Concomitant]
     Indication: BRONCHITIS CHRONIC
     Dosage: FOR MANY YEARS
  6. SPIRIVA [Concomitant]
     Indication: BRONCHITIS CHRONIC
     Dosage: FOR MANY YEARS

REACTIONS (10)
  - ASTHENIA [None]
  - CHEST DISCOMFORT [None]
  - DIZZINESS [None]
  - DYSPNOEA [None]
  - HOT FLUSH [None]
  - NAUSEA [None]
  - PARAESTHESIA ORAL [None]
  - TACHYCARDIA [None]
  - TREMOR [None]
  - VOMITING [None]
